FAERS Safety Report 5577921-X (Version None)
Quarter: 2007Q4

REPORT INFORMATION
  Report Type: 
  Country: None (occurrence: None)
  Receive Date: 20071130
  Receipt Date: 20070627
  Transmission Date: 20080405
  Serious: No
  Sender: FDA-Public Use
  Company Number: US200707000638

PATIENT
  Age: 64 Year
  Sex: Male
  Weight: 104.3 kg

DRUGS (4)
  1. BYETTA [Suspect]
     Indication: TYPE 2 DIABETES MELLITUS
     Dosage: 5 UG, 10 UG, 2/D SUBCUTANEOUS
     Route: 058
     Dates: start: 20070501, end: 20070624
  2. BYETTA [Suspect]
     Indication: TYPE 2 DIABETES MELLITUS
     Dosage: 5 UG, 10 UG, 2/D SUBCUTANEOUS
     Route: 058
     Dates: start: 20070625
  3. GLYBURIDE [Concomitant]
  4. TOPAMAX (TOPIRAMIDE) [Concomitant]

REACTIONS (6)
  - BLOOD GLUCOSE DECREASED [None]
  - DECREASED APPETITE [None]
  - DIARRHOEA [None]
  - FATIGUE [None]
  - GASTROENTERITIS VIRAL [None]
  - WEIGHT DECREASED [None]
